FAERS Safety Report 8585476-0 (Version None)
Quarter: 2012Q3

REPORT INFORMATION
  Report Type: 
  Country: None (occurrence: None)
  Receive Date: 20120810
  Receipt Date: 20111212
  Transmission Date: 20120928
  Serious: No
  Sender: FDA-Public Use
  Company Number: US-GLAXOSMITHKLINE-A0957722A

PATIENT
  Age: 79 Year
  Sex: Male

DRUGS (6)
  1. REQUIP XL [Suspect]
     Indication: PARKINSON'S DISEASE
     Dosage: 12MG PER DAY
     Route: 048
     Dates: start: 20090601
  2. VITAMIN TAB [Concomitant]
  3. MICARDIS [Concomitant]
  4. DICLOFENAC [Concomitant]
  5. NORTRIPTYLINE HCL [Concomitant]
  6. STALEVO 100 [Concomitant]

REACTIONS (2)
  - LIBIDO INCREASED [None]
  - PROSTATIC SPECIFIC ANTIGEN INCREASED [None]
